FAERS Safety Report 22292938 (Version 2)
Quarter: 2023Q4

REPORT INFORMATION
  Report Type: Spontaneous
  Country: TW (occurrence: None)
  Receive Date: 20230508
  Receipt Date: 20231226
  Transmission Date: 20240110
  Serious: Yes (Other)
  Sender: FDA-Public Use
  Company Number: TW-ROCHE-3343751

PATIENT
  Age: 66 Year
  Sex: Female

DRUGS (11)
  1. TARCEVA [Suspect]
     Active Substance: ERLOTINIB HYDROCHLORIDE
     Indication: Lung adenocarcinoma
     Dosage: UNKNOWN DOSE
     Route: 048
     Dates: start: 201903, end: 201905
  2. TARCEVA [Suspect]
     Active Substance: ERLOTINIB HYDROCHLORIDE
     Route: 065
     Dates: start: 201903, end: 201905
  3. ATEZOLIZUMAB [Suspect]
     Active Substance: ATEZOLIZUMAB
     Indication: Lung adenocarcinoma
     Dosage: ABCP
     Route: 065
     Dates: start: 202207
  4. BEVACIZUMAB [Suspect]
     Active Substance: BEVACIZUMAB
     Indication: Lung adenocarcinoma
     Dosage: ABCP
     Route: 065
     Dates: start: 202207
  5. PACLITAXEL [Concomitant]
     Active Substance: PACLITAXEL
     Indication: Lung adenocarcinoma
     Dosage: ABCP
     Route: 065
     Dates: start: 202207
  6. PACLITAXEL [Concomitant]
     Active Substance: PACLITAXEL
     Dosage: UNKNOWN DOSE
     Route: 065
     Dates: start: 202203, end: 202204
  7. CARBOPLATIN [Concomitant]
     Active Substance: CARBOPLATIN
     Indication: Lung adenocarcinoma
     Dosage: ABCP
     Route: 065
     Dates: start: 202207
  8. CARBOPLATIN [Concomitant]
     Active Substance: CARBOPLATIN
     Dosage: PEMETREXED + CARBOPLATIN
     Route: 065
     Dates: start: 201905, end: 201910
  9. PEMETREXED [Concomitant]
     Active Substance: PEMETREXED
     Indication: Lung adenocarcinoma
     Dosage: UNKNOWN DOSE
     Route: 065
     Dates: start: 201910, end: 202203
  10. PEMETREXED [Concomitant]
     Active Substance: PEMETREXED
     Dosage: PEMETREXED + CARBOPLATIN
     Route: 065
     Dates: start: 201905, end: 201910
  11. AFATINIB [Concomitant]
     Active Substance: AFATINIB
     Indication: Lung adenocarcinoma
     Dosage: UNKNOWN DOSE
     Dates: start: 202204, end: 202206

REACTIONS (4)
  - Disseminated intravascular coagulation [Unknown]
  - Disease progression [Unknown]
  - Off label use [Unknown]
  - Pleural effusion [Unknown]
